FAERS Safety Report 6422550-9 (Version None)
Quarter: 2009Q4

REPORT INFORMATION
  Report Type: 
  Country: None (occurrence: None)
  Receive Date: 20091102
  Receipt Date: 20091023
  Transmission Date: 20100525
  Serious: Yes (Hospitalization)
  Sender: FDA-Public Use
  Company Number: US-BIOGENIDEC-2007BI022830

PATIENT
  Age: 36 Year
  Sex: Female

DRUGS (4)
  1. AVONEX [Suspect]
     Indication: MULTIPLE SCLEROSIS
     Route: 030
     Dates: start: 20061110, end: 20071001
  2. AVONEX [Suspect]
     Route: 030
     Dates: start: 20071127
  3. AVONEX [Suspect]
  4. MEDS (NOS) [Concomitant]

REACTIONS (1)
  - HEPATIC FAILURE [None]
